FAERS Safety Report 8454311-3 (Version None)
Quarter: 2012Q2

REPORT INFORMATION
  Report Type: 
  Country: None (occurrence: None)
  Receive Date: 20120620
  Receipt Date: 20120521
  Transmission Date: 20120825
  Serious: Yes (Other)
  Sender: FDA-Public Use
  Company Number: PHHY2012US052027

PATIENT
  Age: 67 Year
  Sex: Female

DRUGS (2)
  1. AFINITOR [Suspect]
     Dosage: 5 MG, DAILY
  2. AFINITOR [Suspect]
     Indication: NON-SMALL CELL LUNG CANCER
     Dosage: 10 MG, DAILY
     Route: 048

REACTIONS (6)
  - MUCOSAL INFLAMMATION [None]
  - DYSPNOEA [None]
  - LUNG CONSOLIDATION [None]
  - CONCOMITANT DISEASE AGGRAVATED [None]
  - FATIGUE [None]
  - BRONCHITIS [None]
